FAERS Safety Report 4312194-7 (Version None)
Quarter: 2004Q1

REPORT INFORMATION
  Report Type: 
  Country: None (occurrence: None)
  Receive Date: 20040303
  Receipt Date: 20040223
  Transmission Date: 20041129
  Serious: Yes (Hospitalization, Disabling)
  Sender: FDA-Public Use
  Company Number: 2004US000031

PATIENT
  Age: 20 Year
  Sex: Female
  Weight: 40.4 kg

DRUGS (9)
  1. PROGRAF [Suspect]
     Indication: RENAL TRANSPLANT
     Dosage: 7.00 MG, BID, ORAL
     Route: 048
     Dates: start: 20030828, end: 20031230
  2. CELLCEPT [Concomitant]
  3. COUMADIN [Concomitant]
  4. DITROPAN [Concomitant]
  5. AMPICILLIN [Concomitant]
  6. GENTAMICIN [Concomitant]
  7. CLINDA (CLINDAMYCIN PHOSPHATE) [Concomitant]
  8. ZOFRAN [Concomitant]
  9. REGLAN [Concomitant]

REACTIONS (5)
  - CEREBELLAR ATAXIA [None]
  - CEREBELLAR SYNDROME [None]
  - DYSARTHRIA [None]
  - MOVEMENT DISORDER [None]
  - PYREXIA [None]
